FAERS Safety Report 24601063 (Version 1)
Quarter: 2024Q4

REPORT INFORMATION
  Report Type: Spontaneous
  Country: US (occurrence: US)
  Receive Date: 20241110
  Receipt Date: 20241110
  Transmission Date: 20250114
  Serious: No
  Sender: BOEHRINGER INGELHEIM
  Company Number: US-Komodo Health-a23aa000004AM8DAAW

PATIENT
  Sex: Male

DRUGS (2)
  1. MICARDIS [Suspect]
     Active Substance: TELMISARTAN
     Indication: Hypertension
     Dosage: DAILY DOSE: 80 MILLIGRAM(S)
     Dates: start: 2007
  2. MICARDIS [Suspect]
     Active Substance: TELMISARTAN
     Dosage: DAILY DOSE: 40 MILLIGRAM(S)

REACTIONS (4)
  - Blood pressure increased [Unknown]
  - Headache [Unknown]
  - Condition aggravated [Unknown]
  - Drug ineffective [Unknown]
